FAERS Safety Report 7329831-5 (Version None)
Quarter: 2011Q1

REPORT INFORMATION
  Report Type: 
  Country: None (occurrence: None)
  Receive Date: 20110303
  Receipt Date: 20110218
  Transmission Date: 20110831
  Serious: No
  Sender: FDA-Public Use
  Company Number: PE-ELI_LILLY_AND_COMPANY-PE201102006163

PATIENT
  Age: 86 Year
  Sex: Female

DRUGS (2)
  1. MEMANTINE [Concomitant]
     Dosage: 20 MG, UNK
  2. ZYPREXA [Suspect]
     Indication: PSYCHOTIC DISORDER
     Dosage: 5 MG, UNK
     Dates: start: 20100101

REACTIONS (1)
  - ECCHYMOSIS [None]
